FAERS Safety Report 17731000 (Version 10)
Quarter: 2022Q1

REPORT INFORMATION
  Report Type: Report from Study
  Country: ES (occurrence: None)
  Receive Date: 20200430
  Receipt Date: 20220131
  Transmission Date: 20220423
  Serious: Yes (Hospitalization)
  Sender: FDA-Public Use
  Company Number: ES-ROCHE-2590781

PATIENT
  Age: 52 Year
  Sex: Female
  Weight: 87.8 kg

DRUGS (27)
  1. ATEZOLIZUMAB [Suspect]
     Active Substance: ATEZOLIZUMAB
     Indication: Small cell lung cancer extensive stage
     Dosage: ON 10/MAR/2020, MOST RECENT DOSE OF ATEZOLIZUMAB (1200 MG) PRIOR TO AE ONSET?AS PER PROTOCOL (1200 M
     Route: 041
     Dates: start: 20200107
  2. CARBOPLATIN [Suspect]
     Active Substance: CARBOPLATIN
     Indication: Small cell lung cancer extensive stage
     Dosage: ON 10/MAR/2020, MOST RECENT DOSE (750 MG ) OF CARBOPLATIN PRIOR TO AE ONSET?AS PER PROTOCOL (INITIAL
     Route: 042
     Dates: start: 20200107
  3. ETOPOSIDE [Suspect]
     Active Substance: ETOPOSIDE
     Indication: Small cell lung cancer extensive stage
     Dosage: ON 12/MAR/2020, MOST RECENT DOSE (199 MG) OF ETOPOSIDE PRIOR TO AE ONSET?AS PER PROTOCOL (100 MG/M^2
     Route: 042
     Dates: start: 20200107
  4. DULOXETINE [Concomitant]
     Active Substance: DULOXETINE
     Indication: Mixed anxiety and depressive disorder
     Route: 048
     Dates: end: 20200423
  5. OMEPRAZOLE [Concomitant]
     Active Substance: OMEPRAZOLE
     Indication: Prophylaxis
     Route: 048
  6. FENOFIBRATE [Concomitant]
     Active Substance: FENOFIBRATE
     Indication: Blood triglycerides increased
     Route: 048
     Dates: start: 20200218
  7. FENOFIBRATE [Concomitant]
     Active Substance: FENOFIBRATE
     Route: 048
     Dates: start: 20200218
  8. FERROUS SULFATE [Concomitant]
     Active Substance: FERROUS SULFATE
     Indication: Prophylaxis
     Route: 048
     Dates: start: 20200310
  9. ENALAPRIL [Concomitant]
     Active Substance: ENALAPRIL
     Indication: Hypertension
     Route: 048
     Dates: start: 20200310
  10. FUROSEMIDE [Concomitant]
     Active Substance: FUROSEMIDE
     Indication: Prophylaxis
     Route: 048
     Dates: start: 20200331
  11. FUROSEMIDE [Concomitant]
     Active Substance: FUROSEMIDE
     Indication: Oliguria
     Route: 048
     Dates: start: 20200331, end: 20200506
  12. DEXAMETHASONE [Concomitant]
     Active Substance: DEXAMETHASONE
     Route: 048
     Dates: start: 20200218, end: 20200309
  13. DEXAMETHASONE [Concomitant]
     Active Substance: DEXAMETHASONE
     Route: 048
     Dates: start: 20200310, end: 20200330
  14. DEXAMETHASONE [Concomitant]
     Active Substance: DEXAMETHASONE
     Route: 048
     Dates: start: 20200331, end: 20200406
  15. DEXAMETHASONE [Concomitant]
     Active Substance: DEXAMETHASONE
     Dosage: BREAKFAST
     Route: 048
     Dates: start: 20200407
  16. DEXAMETHASONE [Concomitant]
     Active Substance: DEXAMETHASONE
     Dosage: DINNER
     Route: 048
     Dates: start: 20200407
  17. DEXAMETHASONE [Concomitant]
     Active Substance: DEXAMETHASONE
     Route: 048
     Dates: end: 20200217
  18. LORMETAZEPAM [Concomitant]
     Active Substance: LORMETAZEPAM
     Indication: Insomnia
     Route: 048
     Dates: start: 20200218
  19. MYCOSTATIN [Concomitant]
     Active Substance: NYSTATIN
     Indication: Prophylaxis
     Route: 061
     Dates: start: 20200428, end: 20200513
  20. BETAHISTINE [Concomitant]
     Active Substance: BETAHISTINE
     Indication: Vertigo
     Dates: start: 20200429
  21. FENTANYL [Concomitant]
     Active Substance: FENTANYL
  22. MIDAZOLAM [Concomitant]
     Active Substance: MIDAZOLAM
  23. ONDANSETRON [Concomitant]
     Active Substance: ONDANSETRON
     Dates: start: 20200107
  24. RANITIDINE [Concomitant]
     Active Substance: RANITIDINE
  25. GLUCOSALINE [Concomitant]
     Dates: start: 20200107
  26. METHYLPREDNISOLONE [Concomitant]
     Active Substance: METHYLPREDNISOLONE
     Route: 042
     Dates: start: 20200423, end: 20200428
  27. METHYLPREDNISOLONE [Concomitant]
     Active Substance: METHYLPREDNISOLONE
     Route: 042
     Dates: start: 20200428, end: 20200430

REACTIONS (1)
  - Hepatotoxicity [Recovered/Resolved]

NARRATIVE: CASE EVENT DATE: 20200423
